FAERS Safety Report 10155861 (Version 1)
Quarter: 2014Q2

REPORT INFORMATION
  Report Type: Spontaneous
  Country: PT (occurrence: PT)
  Receive Date: 20140506
  Receipt Date: 20140506
  Transmission Date: 20141212
  Serious: Yes (Other)
  Sender: FDA-Public Use
  Company Number: PT-ACTAVIS-2014-08934

PATIENT
  Age: 58 Year
  Sex: Female
  Weight: 63 kg

DRUGS (6)
  1. PACLITAXEL ACTAVIS [Suspect]
     Indication: NEOADJUVANT THERAPY
     Dosage: 130 MG, 1/WEEK
     Route: 040
     Dates: start: 20140325, end: 20140325
  2. SODIUM CHLORIDE [Concomitant]
     Indication: MEDICATION DILUTION
     Dosage: 250 ML, 1/WEEK; VAL: 12-2015
     Route: 042
     Dates: start: 20140325, end: 20140325
  3. TAVIST                             /00137202/ [Concomitant]
     Indication: PREMEDICATION
     Dosage: 2 MG, 1/WEEK
     Route: 042
     Dates: start: 20140325
  4. RANITIDINA [Concomitant]
     Indication: PREMEDICATION
     Dosage: 50 MG, 1/WEEK
     Route: 042
     Dates: start: 20140325
  5. DEXAMETASONA                       /00016001/ [Concomitant]
     Indication: PREMEDICATION
     Dosage: 10 MG, 1/WEEK
     Route: 042
     Dates: start: 20140325
  6. HERCEPTIN [Concomitant]
     Indication: NEOPLASM
     Dosage: 600 MG, ONCE EVERY 21 DAYS, GIVEN 1 HOUR BEFORE PACLITAXEL
     Route: 058
     Dates: start: 20140325

REACTIONS (2)
  - Anxiety [Recovered/Resolved]
  - Back pain [Recovered/Resolved]
